FAERS Safety Report 18684449 (Version 4)
Quarter: 2021Q2

REPORT INFORMATION
  Report Type: Spontaneous
  Country: US (occurrence: US)
  Receive Date: 20201230
  Receipt Date: 20210415
  Transmission Date: 20210717
  Serious: No
  Sender: FDA-Public Use
  Company Number: US-PFIZER INC-2020513808

PATIENT
  Age: 59 Year
  Sex: Male

DRUGS (1)
  1. XELJANZ XR [Suspect]
     Active Substance: TOFACITINIB CITRATE
     Dosage: 11 MG, 1X/DAY (QD)
     Route: 048
     Dates: start: 20201210

REACTIONS (4)
  - Nervousness [Unknown]
  - Pain [Unknown]
  - Anxiety [Unknown]
  - Tension [Unknown]

NARRATIVE: CASE EVENT DATE: 202012
